FAERS Safety Report 21650058 (Version 3)
Quarter: 2023Q1

REPORT INFORMATION
  Report Type: Spontaneous
  Country: FR (occurrence: FR)
  Receive Date: 20221128
  Receipt Date: 20230125
  Transmission Date: 20230417
  Serious: Yes (Other)
  Sender: FDA-Public Use
  Company Number: FR-AMGEN-FRASP2022193879

PATIENT
  Age: 94 Year
  Sex: Female
  Weight: 48 kg

DRUGS (2)
  1. NPLATE [Suspect]
     Active Substance: ROMIPLOSTIM
     Indication: Thrombocytopenia
     Dosage: 1 MICROGRAM/KILOGRAM
     Route: 058
     Dates: start: 20220525, end: 20221119
  2. NPLATE [Suspect]
     Active Substance: ROMIPLOSTIM
     Dosage: DOSE INCREASE BY INCREMENTS OF 1 MUG/KG PER WEEK
     Route: 058

REACTIONS (2)
  - Thrombocytopenia [Not Recovered/Not Resolved]
  - Drug ineffective [Not Recovered/Not Resolved]

NARRATIVE: CASE EVENT DATE: 20220704
